FAERS Safety Report 8686564 (Version 2)
Quarter: 2012Q4

REPORT INFORMATION
  Report Type: 
  Country: US (occurrence: US)
  Receive Date: 20120726
  Receipt Date: 20120911
  Transmission Date: 20130627
  Serious: Yes (Other)
  Sender: FDA-Public Use
  Company Number: US-RB-042643-12

PATIENT
  Sex: Female

DRUGS (9)
  1. SUBOXONE FILM [Suspect]
     Indication: DRUG DEPENDENCE
     Dosage: Suboxone film: 24 mg prescribed, took 8 mg daily
     Route: 060
     Dates: start: 2011, end: 2011
  2. ABILIFY [Suspect]
     Indication: BIPOLAR DISORDER
     Dosage: Unknown dosing details
     Route: 065
  3. HALDOL [Suspect]
     Indication: BIPOLAR DISORDER
     Dosage: Unknown dosing details
     Route: 065
  4. DEPAKOTE [Concomitant]
     Indication: BIPOLAR DISORDER
     Dosage: Dosing details unknown
     Route: 065
  5. LITHIUM [Concomitant]
     Indication: BIPOLAR DISORDER
     Dosage: Dosing details unknown
     Route: 065
  6. WELLBUTRIN [Concomitant]
     Indication: DEPRESSION
     Route: 065
  7. WELLBUTRIN [Concomitant]
     Indication: ANXIETY
     Route: 065
  8. NEURONTIN [Concomitant]
     Indication: NEURALGIA
     Route: 065
  9. VALIUM [Concomitant]
     Indication: MUSCLE SPASMS
     Dosage: Dosing details unknown
     Route: 065
     Dates: start: 2011

REACTIONS (2)
  - Underdose [Recovered/Resolved]
  - Hallucination [Recovered/Resolved]
